FAERS Safety Report 4628716-2 (Version None)
Quarter: 2005Q1

REPORT INFORMATION
  Report Type: 
  Country: None (occurrence: None)
  Receive Date: 20050107
  Receipt Date: 20041005
  Transmission Date: 20050727
  Serious: No
  Sender: FDA-Public Use
  Company Number: 235038K04USA

PATIENT
  Age: 50 Year
  Sex: Female

DRUGS (1)
  1. REBIF [Suspect]
     Dosage: 44 MCG
     Dates: start: 20040706

REACTIONS (3)
  - ABDOMINAL PAIN [None]
  - HYPERTONIC BLADDER [None]
  - URINARY INCONTINENCE [None]
